FAERS Safety Report 4902035-9 (Version None)
Quarter: 2006Q1

REPORT INFORMATION
  Report Type: 
  Country: None (occurrence: None)
  Receive Date: 20060202
  Receipt Date: 20060202
  Transmission Date: 20060701
  Serious: Yes (Other)
  Sender: FDA-Public Use
  Company Number: None

PATIENT
  Age: 19 Year
  Sex: Male
  Weight: 65.7716 kg

DRUGS (1)
  1. PAXIL [Suspect]
     Indication: GENERALISED ANXIETY DISORDER
     Dosage: 20MG   ONCE DAILY PO
     Route: 048
     Dates: start: 20020505, end: 20060117

REACTIONS (2)
  - ALCOHOLIC [None]
  - DRUG TOLERANCE INCREASED [None]
